FAERS Safety Report 10006516 (Version 2)
Quarter: 2014Q1

REPORT INFORMATION
  Report Type: Spontaneous
  Country: IT (occurrence: IT)
  Receive Date: 20140313
  Receipt Date: 20140317
  Transmission Date: 20141002
  Serious: Yes (Other)
  Sender: FDA-Public Use
  Company Number: IT-B.I. PHARMACEUTICALS,INC./RIDGEFIELD-2014-BI-10240IT

PATIENT
  Age: 80 Year
  Sex: Male

DRUGS (5)
  1. PRADAXA [Suspect]
     Indication: CARDIAC PACEMAKER INSERTION
     Route: 048
     Dates: start: 20130802, end: 20131125
  2. APROVEL [Concomitant]
     Route: 048
  3. LIBRADIN [Concomitant]
     Route: 048
  4. TRIATEC [Concomitant]
     Route: 048
  5. LASIX [Concomitant]
     Route: 048

REACTIONS (3)
  - Diplopia [Recovered/Resolved]
  - Tremor [Recovered/Resolved]
  - Amimia [Recovered/Resolved]
